FAERS Safety Report 5254864-2 (Version None)
Quarter: 2007Q1

REPORT INFORMATION
  Report Type: 
  Country: None (occurrence: None)
  Receive Date: 20070305
  Receipt Date: 20070221
  Transmission Date: 20070707
  Serious: Yes (Other)
  Sender: FDA-Public Use
  Company Number: DE-BRISTOL-MYERS SQUIBB COMPANY-13689419

PATIENT
  Sex: Male

DRUGS (1)
  1. SUSTIVA [Suspect]

REACTIONS (2)
  - FEELING ABNORMAL [None]
  - ROAD TRAFFIC ACCIDENT [None]
